FAERS Safety Report 18110468 (Version 5)
Quarter: 2021Q3

REPORT INFORMATION
  Report Type: Report from Study
  Country: US (occurrence: US)
  Receive Date: 20200804
  Receipt Date: 20210728
  Transmission Date: 20211014
  Serious: Yes (Life-Threatening, Hospitalization, Other)
  Sender: FDA-Public Use
  Company Number: NVSC2020US212682

PATIENT
  Age: 79 Year
  Sex: Female

DRUGS (1)
  1. ENTRESTO [Suspect]
     Active Substance: SACUBITRIL\VALSARTAN
     Indication: CARDIAC FAILURE
     Dosage: 1 DF, BID
     Route: 048
     Dates: start: 20200327

REACTIONS (23)
  - Weight decreased [Unknown]
  - Headache [Recovered/Resolved]
  - Overdose [Unknown]
  - Heart rate increased [Unknown]
  - Peripheral swelling [Recovered/Resolved]
  - Dyspnoea [Unknown]
  - Rhinorrhoea [Unknown]
  - Fluid retention [Unknown]
  - Hypotension [Unknown]
  - Cardiac disorder [Unknown]
  - Fatigue [Unknown]
  - Gait disturbance [Unknown]
  - Mobility decreased [Unknown]
  - Dehydration [Recovered/Resolved]
  - Asthenia [Unknown]
  - Malaise [Unknown]
  - Drug dependence [Unknown]
  - Weight increased [Unknown]
  - Dizziness [Not Recovered/Not Resolved]
  - Cardiac valve disease [Unknown]
  - Ejection fraction decreased [Unknown]
  - Limb discomfort [Unknown]
  - Cough [Unknown]

NARRATIVE: CASE EVENT DATE: 20200811
